FAERS Safety Report 8772721 (Version 2)
Quarter: 2013Q4

REPORT INFORMATION
  Report Type: Report from Study
  Country: US (occurrence: US)
  Receive Date: 20120905
  Receipt Date: 20131101
  Transmission Date: 20140711
  Serious: No
  Sender: FDA-Public Use
  Company Number: US-009507513-1208DZA012341

PATIENT
  Age: 47 Year
  Sex: Male
  Weight: 90.7 kg

DRUGS (2)
  1. PEGINTRON [Suspect]
     Dosage: 0.5 ML, QW
     Route: 058
  2. REBETOL [Suspect]

REACTIONS (1)
  - Influenza like illness [Unknown]
